FAERS Safety Report 21985732 (Version 4)
Quarter: 2023Q4

REPORT INFORMATION
  Report Type: Spontaneous
  Country: US (occurrence: US)
  Receive Date: 20230213
  Receipt Date: 20231129
  Transmission Date: 20240108
  Serious: No
  Sender: FDA-Public Use
  Company Number: US-PFIZER INC-PV202300026497

PATIENT
  Age: 70 Year
  Sex: Female

DRUGS (1)
  1. XELJANZ XR [Suspect]
     Active Substance: TOFACITINIB CITRATE
     Indication: Rheumatoid arthritis
     Dosage: 11 MG, 1X/DAY
     Route: 048

REACTIONS (1)
  - Herpes zoster [Recovered/Resolved]
